FAERS Safety Report 14990842 (Version 2)
Quarter: 2020Q3

REPORT INFORMATION
  Report Type: Report from Study
  Country: IL (occurrence: IL)
  Receive Date: 20180608
  Receipt Date: 20180816
  Transmission Date: 20201104
  Serious: Yes (Hospitalization)
  Sender: FDA-Public Use
  Company Number: IL-ASTRAZENECA-2017SE37042

PATIENT
  Age: 23834 Day
  Sex: Male

DRUGS (47)
  1. MEDI4736 [Suspect]
     Active Substance: DURVALUMAB
     Indication: NON-SMALL CELL LUNG CANCER
     Route: 042
     Dates: start: 20160725, end: 20160725
  2. MEDI4736 [Suspect]
     Active Substance: DURVALUMAB
     Indication: NON-SMALL CELL LUNG CANCER
     Route: 042
     Dates: start: 20170215, end: 20170215
  3. MEDI4736 [Suspect]
     Active Substance: DURVALUMAB
     Indication: NON-SMALL CELL LUNG CANCER
     Route: 042
     Dates: start: 20160330, end: 20160330
  4. TREMELIMUMAB. [Suspect]
     Active Substance: TREMELIMUMAB
     Indication: NON-SMALL CELL LUNG CANCER
     Route: 042
     Dates: start: 20160302, end: 20160302
  5. LAXADIN [Concomitant]
     Active Substance: BISACODYL
     Indication: CONSTIPATION
     Route: 048
     Dates: start: 20160308, end: 20160320
  6. FENTA [Concomitant]
     Indication: PAIN
     Route: 048
     Dates: start: 20160129, end: 20160327
  7. FENTA [Concomitant]
     Indication: PAIN
     Dosage: 150 UG/H, EVERY TWO WEEKS
     Route: 062
     Dates: start: 20161013, end: 20170101
  8. ASPIRIN. [Concomitant]
     Active Substance: ASPIRIN
     Indication: MYOCARDIAL INFARCTION
     Route: 048
     Dates: start: 20160913, end: 20160920
  9. MEDI4736 [Suspect]
     Active Substance: DURVALUMAB
     Indication: NON-SMALL CELL LUNG CANCER
     Route: 042
     Dates: start: 20160822, end: 20160822
  10. MEDI4736 [Suspect]
     Active Substance: DURVALUMAB
     Indication: NON-SMALL CELL LUNG CANCER
     Route: 042
     Dates: start: 20161019, end: 20161019
  11. TREMELIMUMAB. [Suspect]
     Active Substance: TREMELIMUMAB
     Indication: NON-SMALL CELL LUNG CANCER
     Route: 042
     Dates: start: 20160330, end: 20160330
  12. FENTA [Concomitant]
     Indication: PAIN
     Route: 062
     Dates: start: 20170310, end: 20170404
  13. ASPIRIN. [Concomitant]
     Active Substance: ASPIRIN
     Indication: LACUNAR INFARCTION
     Route: 048
     Dates: start: 20170305
  14. MEDI4736 [Suspect]
     Active Substance: DURVALUMAB
     Indication: NON-SMALL CELL LUNG CANCER
     Route: 042
     Dates: start: 20170313, end: 20170313
  15. LAXADIN [Concomitant]
     Active Substance: BISACODYL
     Indication: CONSTIPATION
     Route: 048
     Dates: start: 20160427
  16. CANNABIS [Concomitant]
     Active Substance: CANNABIS SATIVA SUBSP. INDICA TOP
     Indication: PAIN
     Dosage: 2 PUFF DAILY
     Route: 048
  17. MORPHINE [Concomitant]
     Active Substance: MORPHINE
     Indication: PAIN
     Dosage: 400.0MG AS REQUIRED
     Route: 048
     Dates: start: 20161019
  18. FENTA [Concomitant]
     Indication: PAIN
     Route: 062
     Dates: start: 20170105, end: 20170220
  19. FENTA [Concomitant]
     Indication: PAIN
     Route: 062
     Dates: start: 20170202, end: 20170310
  20. ASPIRIN. [Concomitant]
     Active Substance: ASPIRIN
     Indication: MYOCARDIAL INFARCTION
     Route: 048
     Dates: start: 20170305
  21. VENTOLIN [Concomitant]
     Active Substance: ALBUTEROL SULFATE
     Indication: CHRONIC OBSTRUCTIVE PULMONARY DISEASE
     Dosage: 2 PUFF, FOUR TIMES A DAY
     Route: 055
     Dates: start: 20170221, end: 20170317
  22. MEDI4736 [Suspect]
     Active Substance: DURVALUMAB
     Indication: NON-SMALL CELL LUNG CANCER
     Route: 042
     Dates: start: 20160525, end: 20160525
  23. XATRAL [Concomitant]
     Active Substance: ALFUZOSIN
     Indication: BENIGN PROSTATIC HYPERPLASIA
     Route: 048
  24. FENTA [Concomitant]
     Indication: PAIN
     Route: 061
     Dates: start: 20160427, end: 20160620
  25. ASPIRIN. [Concomitant]
     Active Substance: ASPIRIN
     Indication: LACUNAR INFARCTION
     Route: 048
     Dates: start: 20160913, end: 20160920
  26. FORADIL [Concomitant]
     Active Substance: FORMOTEROL FUMARATE
     Indication: CHRONIC OBSTRUCTIVE PULMONARY DISEASE
     Route: 055
     Dates: start: 20170215
  27. MEDI4736 [Suspect]
     Active Substance: DURVALUMAB
     Indication: NON-SMALL CELL LUNG CANCER
     Route: 042
     Dates: start: 20161212, end: 20161212
  28. TREMELIMUMAB. [Suspect]
     Active Substance: TREMELIMUMAB
     Indication: NON-SMALL CELL LUNG CANCER
     Route: 042
     Dates: start: 20160427, end: 20160427
  29. OMEPRADEX [Concomitant]
     Active Substance: OMEPRAZOLE
     Indication: PROPHYLAXIS
     Route: 048
     Dates: start: 20160302
  30. FENTA [Concomitant]
     Indication: PAIN
     Route: 062
     Dates: start: 20160712, end: 20161012
  31. RELVAR [Concomitant]
     Active Substance: FLUTICASONE FUROATE\VILANTEROL TRIFENATATE
     Indication: CHRONIC OBSTRUCTIVE PULMONARY DISEASE
     Dosage: 1 PUFF DAILY
     Route: 055
     Dates: start: 20170215
  32. MEDI4736 [Suspect]
     Active Substance: DURVALUMAB
     Indication: NON-SMALL CELL LUNG CANCER
     Route: 042
     Dates: start: 20160627, end: 20160627
  33. MEDI4736 [Suspect]
     Active Substance: DURVALUMAB
     Indication: NON-SMALL CELL LUNG CANCER
     Route: 042
     Dates: start: 20160918, end: 20160918
  34. MEDI4736 [Suspect]
     Active Substance: DURVALUMAB
     Indication: NON-SMALL CELL LUNG CANCER
     Route: 042
     Dates: start: 20160427, end: 20160427
  35. FENTA [Concomitant]
     Indication: PAIN
     Route: 062
     Dates: start: 20170102, end: 20170105
  36. FENTA [Concomitant]
     Indication: PAIN
     Route: 062
     Dates: start: 20170404
  37. PLAVIX [Concomitant]
     Active Substance: CLOPIDOGREL BISULFATE
     Indication: MYOCARDIAL INFARCTION
     Route: 048
     Dates: start: 20170305
  38. MEDI4736 [Suspect]
     Active Substance: DURVALUMAB
     Indication: NON-SMALL CELL LUNG CANCER
     Route: 042
     Dates: start: 20170109, end: 20170109
  39. TREMELIMUMAB. [Suspect]
     Active Substance: TREMELIMUMAB
     Indication: NON-SMALL CELL LUNG CANCER
     Route: 042
     Dates: start: 20160525, end: 20160525
  40. TRITACE [Concomitant]
     Active Substance: RAMIPRIL
     Indication: HYPERTENSION
     Route: 048
  41. GABAPENTIN. [Concomitant]
     Active Substance: GABAPENTIN
     Indication: PAIN
     Route: 048
     Dates: start: 20160427
  42. PRAMIN [Concomitant]
     Indication: NAUSEA
     Dosage: 10.0MG AS REQUIRED
     Route: 048
     Dates: start: 20160427
  43. MEDI4736 [Suspect]
     Active Substance: DURVALUMAB
     Indication: NON-SMALL CELL LUNG CANCER
     Route: 042
     Dates: start: 20161114, end: 20161114
  44. MEDI4736 [Suspect]
     Active Substance: DURVALUMAB
     Indication: NON-SMALL CELL LUNG CANCER
     Route: 042
     Dates: start: 20160302, end: 20160302
  45. NIFEDIPINE. [Concomitant]
     Active Substance: NIFEDIPINE
     Indication: BLOOD PRESSURE MEASUREMENT
     Route: 048
  46. PRAMIN [Concomitant]
     Indication: NAUSEA
     Dosage: 10.0MG ONCE/SINGLE ADMINISTRATION
     Route: 042
     Dates: start: 20160913, end: 20160913
  47. FENTA [Concomitant]
     Indication: PAIN
     Route: 061
     Dates: start: 20160620, end: 20160711

REACTIONS (1)
  - Dyspnoea [Not Recovered/Not Resolved]

NARRATIVE: CASE EVENT DATE: 20170329
